FAERS Safety Report 24760734 (Version 2)
Quarter: 2025Q1

REPORT INFORMATION
  Report Type: Report from Study
  Country: GR (occurrence: GR)
  Receive Date: 20241220
  Receipt Date: 20250203
  Transmission Date: 20250408
  Serious: Yes (Other)
  Sender: TEVA
  Company Number: GR-TEVA-VS-3276635

PATIENT
  Age: 79 Year
  Sex: Female

DRUGS (2)
  1. OXALIPLATIN [Suspect]
     Active Substance: OXALIPLATIN
     Indication: Colon neoplasm
     Route: 065
  2. FLUOROURACIL [Concomitant]
     Active Substance: FLUOROURACIL
     Indication: Colon neoplasm
     Route: 065

REACTIONS (2)
  - Warm autoimmune haemolytic anaemia [Recovering/Resolving]
  - Extravascular haemolysis [Recovering/Resolving]
